FAERS Safety Report 8954502 (Version 4)
Quarter: 2013Q2

REPORT INFORMATION
  Report Type: Spontaneous
  Country: US (occurrence: US)
  Receive Date: 20121207
  Receipt Date: 20130524
  Transmission Date: 20140414
  Serious: Yes (Hospitalization)
  Sender: FDA-Public Use
  Company Number: US-ELI_LILLY_AND_COMPANY-US201206005460

PATIENT
  Age: 76 Year
  Sex: Female

DRUGS (13)
  1. FORTEO [Suspect]
     Indication: OSTEOPOROSIS
     Dosage: 20 UG, QD
     Route: 065
     Dates: start: 20120416
  2. FORTEO [Suspect]
     Dosage: 20 UG, QD
  3. FORTEO [Suspect]
     Dosage: 20 UG, QD
  4. FORTEO [Suspect]
     Dosage: UNK, QD
     Dates: start: 20120416
  5. ALPRAZOLAM [Concomitant]
  6. ASPIRIN [Concomitant]
  7. VITAMIN C [Concomitant]
  8. MAGNESIUM [Concomitant]
  9. VITAMIN B12 [Concomitant]
  10. VITAMIN B6 [Concomitant]
  11. CALCIUM W/VITAMIN D NOS [Concomitant]
  12. VITAMIN D3 [Concomitant]
  13. OSTEO-BI-FLEX [Concomitant]

REACTIONS (10)
  - Spinal compression fracture [Recovered/Resolved with Sequelae]
  - Accident at work [Recovered/Resolved with Sequelae]
  - Malaise [Unknown]
  - Cataract [Not Recovered/Not Resolved]
  - Weight decreased [Unknown]
  - Joint injury [Recovered/Resolved with Sequelae]
  - Contusion [Recovered/Resolved with Sequelae]
  - Injection site bruising [Recovering/Resolving]
  - Device breakage [Unknown]
  - Compression fracture [Unknown]
